FAERS Safety Report 7299998-6 (Version None)
Quarter: 2011Q1

REPORT INFORMATION
  Report Type: 
  Country: None (occurrence: None)
  Receive Date: 20110217
  Receipt Date: 20110203
  Transmission Date: 20110831
  Serious: Yes (Other)
  Sender: FDA-Public Use
  Company Number: JP-CELGENEUS-087-21880-11020516

PATIENT
  Sex: Female

DRUGS (10)
  1. LENADEX [Suspect]
     Indication: MULTIPLE MYELOMA
     Route: 048
     Dates: start: 20100908, end: 20100911
  2. ASPIRIN [Concomitant]
     Indication: PROPHYLAXIS
     Route: 048
     Dates: start: 20100908
  3. LENADEX [Suspect]
     Route: 048
     Dates: start: 20101012, end: 20101021
  4. BAKTAR [Concomitant]
     Indication: PROPHYLAXIS
     Route: 048
     Dates: start: 20100908
  5. DEPAS [Concomitant]
     Route: 048
     Dates: start: 20101021, end: 20101026
  6. TAKEPRON [Concomitant]
     Indication: PROPHYLAXIS
     Route: 048
     Dates: start: 20100908
  7. RISPERDAL [Concomitant]
     Route: 048
     Dates: start: 20101021, end: 20101026
  8. REVLIMID [Suspect]
     Indication: MULTIPLE MYELOMA
     Route: 048
     Dates: start: 20100908, end: 20100928
  9. REVLIMID [Suspect]
     Route: 048
     Dates: start: 20101012, end: 20101021
  10. PREDNISONE [Concomitant]
     Indication: MULTIPLE MYELOMA
     Route: 048
     Dates: start: 20101022

REACTIONS (2)
  - ANXIETY DISORDER [None]
  - DELIRIUM [None]
